FAERS Safety Report 12869897 (Version 2)
Quarter: 2017Q4

REPORT INFORMATION
  Report Type: Spontaneous
  Country: US (occurrence: US)
  Receive Date: 20161021
  Receipt Date: 20171025
  Transmission Date: 20180320
  Serious: No
  Sender: FDA-Public Use
  Company Number: US-BAUSCH-BL-2016-017266

PATIENT
  Sex: Female
  Weight: 68.1 kg

DRUGS (10)
  1. LIBRAX [Suspect]
     Active Substance: CHLORDIAZEPOXIDE HYDROCHLORIDE\CLIDINIUM BROMIDE
     Dosage: 5 MG/2.5 MG
     Route: 048
     Dates: start: 201607
  2. LIBRAX [Suspect]
     Active Substance: CHLORDIAZEPOXIDE HYDROCHLORIDE\CLIDINIUM BROMIDE
     Route: 048
     Dates: start: 2016
  3. LIBRAX [Suspect]
     Active Substance: CHLORDIAZEPOXIDE HYDROCHLORIDE\CLIDINIUM BROMIDE
     Dosage: 5 MG/2.5 MG FOUR TIMES DAILY
     Route: 048
  4. LIBRAX [Suspect]
     Active Substance: CHLORDIAZEPOXIDE HYDROCHLORIDE\CLIDINIUM BROMIDE
     Dosage: 5 MG/2.5 MG
     Route: 048
  5. PREDNISONE. [Suspect]
     Active Substance: PREDNISONE
     Indication: INFLAMMATION
     Route: 048
  6. TAGAMET [Concomitant]
     Active Substance: CIMETIDINE
     Indication: PRODUCT USED FOR UNKNOWN INDICATION
  7. LIBRAX [Suspect]
     Active Substance: CHLORDIAZEPOXIDE HYDROCHLORIDE\CLIDINIUM BROMIDE
     Dosage: BELOW 1 CAPSULE 4 TIMES A DAY
     Route: 048
     Dates: start: 20160710
  8. LIBRAX [Suspect]
     Active Substance: CHLORDIAZEPOXIDE HYDROCHLORIDE\CLIDINIUM BROMIDE
     Indication: BOWEL MOVEMENT IRREGULARITY
     Dosage: 5 MG/2.5 MG FOUR TIMES DAILY
     Route: 048
     Dates: start: 1985
  9. REGLAN [Concomitant]
     Active Substance: METOCLOPRAMIDE HYDROCHLORIDE
     Indication: PRODUCT USED FOR UNKNOWN INDICATION
     Dosage: 1-2 TABLETS A DAY
     Route: 048
  10. CARAFATE [Concomitant]
     Active Substance: SUCRALFATE
     Indication: PRODUCT USED FOR UNKNOWN INDICATION
     Route: 048

REACTIONS (11)
  - Pain [Recovered/Resolved]
  - Product use complaint [Recovered/Resolved]
  - Oesophageal spasm [Recovered/Resolved]
  - Spinal disorder [Not Recovered/Not Resolved]
  - Treatment noncompliance [Unknown]
  - Vomiting [Recovered/Resolved]
  - Inflammation [Not Recovered/Not Resolved]
  - Oesophageal pain [Unknown]
  - Gastrointestinal pain [Recovered/Resolved]
  - Hypertension [Not Recovered/Not Resolved]
  - Back pain [Unknown]

NARRATIVE: CASE EVENT DATE: 1989
